FAERS Safety Report 9100803 (Version 2)
Quarter: 2013Q1

REPORT INFORMATION
  Report Type: Spontaneous
  Country: US (occurrence: US)
  Receive Date: 20130215
  Receipt Date: 20130313
  Transmission Date: 20140127
  Serious: No
  Sender: FDA-Public Use
  Company Number: US-PFIZER INC-2013059601

PATIENT
  Age: 69 Year
  Sex: Female
  Weight: 68 kg

DRUGS (5)
  1. LYRICA [Suspect]
     Indication: BACK PAIN
     Dosage: 150 MG, 3X/DAY
  2. LYRICA [Suspect]
     Indication: PAIN IN EXTREMITY
  3. ALBUTEROL SULFATE [Concomitant]
     Indication: ASTHMA
     Dosage: UNK, AS NEEDED
  4. SPIRIVA [Concomitant]
     Indication: ASTHMA
     Dosage: UNK
  5. SINGULAIR [Concomitant]
     Indication: ASTHMA
     Dosage: 10 MG DAILY

REACTIONS (2)
  - Pain [Not Recovered/Not Resolved]
  - Tremor [Not Recovered/Not Resolved]
